FAERS Safety Report 4413906-4 (Version None)
Quarter: 2004Q3

REPORT INFORMATION
  Report Type: 
  Country: None (occurrence: None)
  Receive Date: 20040729
  Receipt Date: 20040727
  Transmission Date: 20050211
  Serious: Yes (Hospitalization, Other)
  Sender: FDA-Public Use
  Company Number: ZAWYE930927JUL04

PATIENT
  Age: 15 Year
  Sex: Female

DRUGS (3)
  1. EFFEXOR XR [Suspect]
     Indication: DEPRESSION
     Dosage: 75 MG 2X PER 1 DAY ORAL
     Route: 048
     Dates: start: 20040601, end: 20040710
  2. MIDAZOLAM HCL [Concomitant]
  3. ALPRAZOLAM [Concomitant]

REACTIONS (6)
  - HYPOTENSION [None]
  - IRRITABILITY [None]
  - MULTIPLE DRUG OVERDOSE [None]
  - RESTLESSNESS [None]
  - SOMNOLENCE [None]
  - SUICIDE ATTEMPT [None]
